FAERS Safety Report 7127828-1 (Version None)
Quarter: 2010Q4

REPORT INFORMATION
  Report Type: 
  Country: None (occurrence: None)
  Receive Date: 20101130
  Receipt Date: 20101117
  Transmission Date: 20110411
  Serious: Yes (Other)
  Sender: FDA-Public Use
  Company Number: US-CELGENEUS-163-CCAZA-10112290

PATIENT
  Sex: Female

DRUGS (2)
  1. VIDAZA [Suspect]
     Indication: OVARIAN EPITHELIAL CANCER
     Route: 058
  2. CARBOPLATIN [Suspect]
     Indication: OVARIAN EPITHELIAL CANCER
     Route: 051

REACTIONS (17)
  - ALOPECIA [None]
  - ANAEMIA [None]
  - BONE MARROW FAILURE [None]
  - CONSTIPATION [None]
  - FATIGUE [None]
  - HEPATIC ENZYME ABNORMAL [None]
  - INFECTION [None]
  - INJECTION SITE PAIN [None]
  - LEUKOPENIA [None]
  - METABOLIC DISORDER [None]
  - MUCOSAL INFLAMMATION [None]
  - NAUSEA [None]
  - NEUROPATHY PERIPHERAL [None]
  - NEUTROPENIA [None]
  - RASH [None]
  - THROMBOCYTOPENIA [None]
  - VOMITING [None]
